FAERS Safety Report 8227045-8 (Version None)
Quarter: 2012Q1

REPORT INFORMATION
  Report Type: 
  Country: None (occurrence: None)
  Receive Date: 20120322
  Receipt Date: 20120319
  Transmission Date: 20120608
  Serious: No
  Sender: FDA-Public Use
  Company Number: US-PFIZER INC-2012071394

PATIENT
  Sex: Male
  Weight: 146 kg

DRUGS (1)
  1. INLYTA [Suspect]
     Indication: RENAL CANCER METASTATIC
     Dosage: 5 MG, 2X/DAY
     Dates: start: 20120301, end: 20120319

REACTIONS (4)
  - APHONIA [None]
  - PAIN [None]
  - ASTHENIA [None]
  - DYSPHONIA [None]
